FAERS Safety Report 22118341 (Version 1)
Quarter: 2023Q1

REPORT INFORMATION
  Report Type: Spontaneous
  Country: EG (occurrence: EG)
  Receive Date: 20230321
  Receipt Date: 20230321
  Transmission Date: 20230418
  Serious: Yes (Hospitalization, Other)
  Sender: FDA-Public Use
  Company Number: EG-NOVOPROD-1038247

PATIENT
  Age: 739 Month
  Sex: Male
  Weight: 90 kg

DRUGS (2)
  1. MIXTARD HUMAN 70/30 [Suspect]
     Active Substance: INSULIN HUMAN
     Indication: Diabetes mellitus
     Dosage: 60 IU, BID(40 IU IN MORNING AND 20 IU AT NIGHT)
     Route: 058
  2. PROFEX [IBUPROFEN] [Concomitant]
     Indication: Cardiac disorder
     Dosage: 2 TAB/DAY
     Route: 048

REACTIONS (3)
  - Vascular operation [Recovered/Resolved]
  - Glycosylated haemoglobin increased [Unknown]
  - Blood glucose increased [Unknown]

NARRATIVE: CASE EVENT DATE: 20211201
